FAERS Safety Report 14457561 (Version 1)
Quarter: 2018Q1

REPORT INFORMATION
  Report Type: Spontaneous
  Country: US (occurrence: US)
  Receive Date: 20180130
  Receipt Date: 20180130
  Transmission Date: 20180509
  Serious: No
  Sender: FDA-Public Use
  Company Number: US-PFIZER INC-2018038836

PATIENT
  Age: 71 Year
  Sex: Female
  Weight: 61.23 kg

DRUGS (4)
  1. ADVIL PM [Suspect]
     Active Substance: DIPHENHYDRAMINE CITRATE\IBUPROFEN
     Indication: EYE PAIN
     Dosage: UNK
     Dates: start: 20180124, end: 20180124
  2. BACITRACIN. [Suspect]
     Active Substance: BACITRACIN
     Indication: EYE DISORDER
     Dosage: PUT ONE LINE IN THE BOTTOM OF RIGHT EYE BEFORE BED
     Route: 047
     Dates: start: 201801
  3. ADVIL [Suspect]
     Active Substance: IBUPROFEN
     Indication: EYE PAIN
     Dosage: UNK
  4. TOBRAMYCIN. [Suspect]
     Active Substance: TOBRAMYCIN
     Indication: EYE DISORDER
     Dosage: 0.3% 1 DROP INTO RIGHT EYE EVERY 2 HOURS
     Dates: start: 201801

REACTIONS (9)
  - Wrong drug administered [Unknown]
  - Tremor [Recovering/Resolving]
  - Drug ineffective [Unknown]
  - Feeling abnormal [Not Recovered/Not Resolved]
  - Malaise [Not Recovered/Not Resolved]
  - Asthenia [Not Recovered/Not Resolved]
  - Dry mouth [Not Recovered/Not Resolved]
  - Extra dose administered [Unknown]
  - Decreased appetite [Not Recovered/Not Resolved]

NARRATIVE: CASE EVENT DATE: 20180124
